FAERS Safety Report 20692353 (Version 3)
Quarter: 2022Q4

REPORT INFORMATION
  Report Type: Report from Study
  Country: US (occurrence: US)
  Receive Date: 20220409
  Receipt Date: 20221219
  Transmission Date: 20230113
  Serious: No
  Sender: FDA-Public Use
  Company Number: US-NOVARTISTESTPH-NVSC2022US080547

PATIENT
  Sex: Male

DRUGS (2)
  1. COSENTYX [Suspect]
     Active Substance: SECUKINUMAB
     Indication: Product used for unknown indication
     Dosage: UNK
     Route: 065
  2. COSENTYX [Suspect]
     Active Substance: SECUKINUMAB
     Dosage: UNK
     Route: 065

REACTIONS (8)
  - Gait disturbance [Unknown]
  - Cardiac disorder [Unknown]
  - Arthritis [Unknown]
  - Movement disorder [Unknown]
  - Condition aggravated [Unknown]
  - Arthropathy [Unknown]
  - Peripheral swelling [Unknown]
  - Pain [Unknown]
